FAERS Safety Report 9028562 (Version 1)
Quarter: 2013Q1

REPORT INFORMATION
  Report Type: Spontaneous
  Country: US (occurrence: US)
  Receive Date: 20130124
  Receipt Date: 20130124
  Transmission Date: 20140127
  Serious: Yes (Hospitalization)
  Sender: FDA-Public Use
  Company Number: US-GLAXOSMITHKLINE-A1008716A

PATIENT
  Sex: Female

DRUGS (7)
  1. ADVAIR [Suspect]
     Indication: CHRONIC OBSTRUCTIVE PULMONARY DISEASE
     Dosage: 2PUFF TWICE PER DAY
     Route: 055
  2. UNSPECIFIED MEDICATIONS [Suspect]
     Route: 042
  3. ALENDRONATE [Concomitant]
  4. ASPIRIN [Concomitant]
  5. ADVIL [Concomitant]
  6. IRON [Concomitant]
  7. VITAMIN D [Concomitant]

REACTIONS (5)
  - Fall [Unknown]
  - Dyspnoea [Unknown]
  - Impaired work ability [Unknown]
  - Bone disorder [Unknown]
  - Visual impairment [Unknown]
